FAERS Safety Report 17053075 (Version 3)
Quarter: 2020Q2

REPORT INFORMATION
  Report Type: Spontaneous
  Country: JP (occurrence: JP)
  Receive Date: 20191120
  Receipt Date: 20200615
  Transmission Date: 20200713
  Serious: Yes (Other)
  Sender: FDA-Public Use
  Company Number: JP-BRISTOL-MYERS SQUIBB COMPANY-BMS-2019-109350

PATIENT
  Age: 68 Year
  Sex: Male

DRUGS (1)
  1. HYDREA [Suspect]
     Active Substance: HYDROXYUREA
     Indication: POLYCYTHAEMIA VERA
     Dosage: THE PATIENT HE TOOK HYDROXYCARBAMIDE THERAPY AT A DOSE OF  500 MG AT 2 CAPSULES/DAY ON MONDAYS, WEDN
     Route: 048

REACTIONS (2)
  - Off label use [Unknown]
  - Anaphylactic reaction [Unknown]
